FAERS Safety Report 17702949 (Version 1)
Quarter: 2020Q2

REPORT INFORMATION
  Report Type: Spontaneous
  Country: FR (occurrence: FR)
  Receive Date: 20200423
  Receipt Date: 20200423
  Transmission Date: 20200714
  Serious: Yes (Other)
  Sender: FDA-Public Use
  Company Number: FR-009507513-2002FRA010416

PATIENT
  Age: 34 Year
  Sex: Male
  Weight: 74 kg

DRUGS (6)
  1. VALACYCLOVIR HYDROCHLORIDE. [Concomitant]
     Active Substance: VALACYCLOVIR HYDROCHLORIDE
     Dosage: 500 MILLIGRAM, 12 HOURS (Q12H)
     Route: 048
     Dates: start: 2018
  2. ORACILLINE (PENICILLIN V) [Concomitant]
     Active Substance: PENICILLIN V
     Dosage: 2 MEGA-INTERNATIONAL UNIT, 24 HOURS (Q24H)
     Route: 048
     Dates: start: 2018
  3. UVEDOSE [Concomitant]
     Active Substance: CHOLECALCIFEROL
     Dosage: ORAL SOLUTION IN AMPOULE, 1 DOSAGE FORM, 1 MONTH (QM)
     Route: 048
     Dates: start: 2018
  4. KEYTRUDA [Suspect]
     Active Substance: PEMBROLIZUMAB
     Indication: LYMPHOMA
     Dosage: 1 DOSAGE FORM, EVERY 3 WEEKS (Q3W)
     Route: 042
     Dates: start: 20190708, end: 20200210
  5. PENTACARINAT [Concomitant]
     Active Substance: PENTAMIDINE ISETHIONATE
     Dosage: 300 MILLIGRAM, 1 MONTH (QM)
     Route: 042
     Dates: start: 2018
  6. OROCAL D3 [Concomitant]
     Active Substance: CALCIUM CARBONATE\CHOLECALCIFEROL
     Dosage: 1 DOSAGE FORM, 1 DAY (QD), TABLET TO BE SUCKED
     Route: 048
     Dates: start: 2018

REACTIONS (1)
  - Graft versus host disease [Not Recovered/Not Resolved]

NARRATIVE: CASE EVENT DATE: 20190729
